FAERS Safety Report 10588164 (Version 1)
Quarter: 2014Q4

REPORT INFORMATION
  Report Type: Spontaneous
  Country: JP (occurrence: JP)
  Receive Date: 20141117
  Receipt Date: 20141117
  Transmission Date: 20150529
  Serious: Yes (Other)
  Sender: FDA-Public Use
  Company Number: JP-BAYER-2014-162938

PATIENT
  Age: 27 Year
  Sex: Female

DRUGS (3)
  1. LABETALOL [Concomitant]
     Active Substance: LABETALOL\LABETALOL HYDROCHLORIDE
     Indication: RENAL HYPERTENSION
     Dosage: 150 MG, BID
  2. HYDRALAZINE [Concomitant]
     Active Substance: HYDRALAZINE HYDROCHLORIDE
     Indication: RENAL HYPERTENSION
     Dosage: 10 MG, TID
  3. NIFEDIPINE. [Suspect]
     Active Substance: NIFEDIPINE
     Indication: RENAL HYPERTENSION
     Dosage: 20 MG, BID

REACTIONS (6)
  - Maternal exposure during pregnancy [None]
  - Proteinuria [Recovered/Resolved]
  - Caesarean section [None]
  - Premature delivery [None]
  - Hypertension [Recovered/Resolved]
  - Pre-eclampsia [Recovered/Resolved]
